FAERS Safety Report 7603743-1 (Version None)
Quarter: 2011Q2

REPORT INFORMATION
  Report Type: 
  Country: None (occurrence: None)
  Receive Date: 20110630
  Receipt Date: 20110615
  Transmission Date: 20111010
  Serious: Yes (Life-Threatening, Hospitalization)
  Sender: FDA-Public Use
  Company Number: TCI2011A03550

PATIENT
  Age: 65 Year
  Sex: Male

DRUGS (4)
  1. ACTOS [Suspect]
     Indication: TYPE 2 DIABETES MELLITUS
     Dosage: 15 MG (15 MG, 1 D) PER ORAL
     Route: 048
     Dates: start: 20080527
  2. HMG COA REDUCTASE INHIBITORS [Concomitant]
  3. BIGUANIDES [Concomitant]
  4. INSULINS AND ANALOGUES [Concomitant]

REACTIONS (1)
  - LARGE INTESTINE CARCINOMA [None]
